FAERS Safety Report 10419311 (Version 1)
Quarter: 2014Q3

REPORT INFORMATION
  Report Type: Spontaneous
  Country: US (occurrence: None)
  Receive Date: 20140701
  Receipt Date: 20140701
  Transmission Date: 20150326
  Serious: No
  Sender: FDA-Public Use
  Company Number: 1000067796

PATIENT
  Age: 38 Year
  Sex: Female

DRUGS (6)
  1. PRISTIQ EXTENDED RELEASE [Concomitant]
     Active Substance: DESVENLAFAXINE SUCCINATE
  2. MIDODRINE (MIDODRINE) [Concomitant]
  3. NACL (SODIUM CHLORIDE) [Concomitant]
  4. CLONAZEPAM. [Concomitant]
     Active Substance: CLONAZEPAM
  5. LINZESS [Suspect]
     Active Substance: LINACLOTIDE
     Indication: IRRITABLE BOWEL SYNDROME
     Dates: start: 201405, end: 201405
  6. LINZESS [Suspect]
     Active Substance: LINACLOTIDE
     Indication: CONSTIPATION
     Dates: start: 201405, end: 201405

REACTIONS (8)
  - Retching [None]
  - Nausea [None]
  - Faecal incontinence [None]
  - Blood pressure systolic decreased [None]
  - Feeling abnormal [None]
  - Abdominal pain [None]
  - Diarrhoea [None]
  - Abdominal distension [None]

NARRATIVE: CASE EVENT DATE: 201405
